FAERS Safety Report 8480265 (Version 5)
Quarter: 2012Q4

REPORT INFORMATION
  Report Type: 
  Country: SE (occurrence: SE)
  Receive Date: 20120328
  Receipt Date: 20120914
  Transmission Date: 20130627
  Serious: Yes (Death, Hospitalization, Other)
  Sender: FDA-Public Use
  Company Number: SE-B.I. PHARMACEUTICALS,INC./RIDGEFIELD-2012-SW-00246SW

PATIENT
  Age: 79 Year
  Sex: Male

DRUGS (2)
  1. PRADAXA [Suspect]
     Indication: ATRIAL FIBRILLATION
     Dosage: 220 mg
     Dates: start: 20120209, end: 20120320
  2. PREDNISOLON [Concomitant]

REACTIONS (6)
  - Neoplasm progression [Fatal]
  - Lower gastrointestinal haemorrhage [Recovered/Resolved]
  - Sepsis [Recovered/Resolved]
  - Cerebrovascular accident [Not Recovered/Not Resolved]
  - Dizziness [Unknown]
  - Presyncope [Unknown]
